FAERS Safety Report 8903550 (Version 1)
Quarter: 2012Q4

REPORT INFORMATION
  Report Type: 
  Country: SE (occurrence: SE)
  Receive Date: 20121112
  Receipt Date: 20121112
  Transmission Date: 20130627
  Serious: Yes (Hospitalization, Other)
  Sender: FDA-Public Use
  Company Number: SE-PFIZER INC-2012278022

PATIENT
  Age: 70 Year
  Sex: Female
  Weight: 139 kg

DRUGS (6)
  1. GENOTROPIN [Suspect]
     Dosage: 0.67 mg, 1x/day,7 injections/week.
     Route: 058
     Dates: start: 19990222
  2. TESTOSTERONE [Concomitant]
     Indication: LUTEINISING HORMONE DEFICIENCY
     Dosage: UNK
     Dates: start: 19780101
  3. TESTOSTERONE [Concomitant]
     Indication: FOLLICLE-STIMULATING HORMONE DEFICIENCY
  4. LEVOTHYROXINE [Concomitant]
     Indication: TSH DECREASED
     Dosage: UNK
     Dates: start: 19920701
  5. CORTISONE ACETATE [Concomitant]
     Indication: ACTH DECREASED
     Dosage: UNK
     Dates: start: 19920701
  6. NORPROLAC ^SANDOZ^ [Concomitant]
     Indication: GALACTOSAEMIA
     Dosage: UNK
     Dates: start: 19930401

REACTIONS (1)
  - Bone cancer [Unknown]
